FAERS Safety Report 5881504-1 (Version None)
Quarter: 2008Q3

REPORT INFORMATION
  Report Type: 
  Country: None (occurrence: None)
  Receive Date: 20080911
  Receipt Date: 20080902
  Transmission Date: 20090109
  Serious: Yes (Hospitalization, Other)
  Sender: FDA-Public Use
  Company Number: 2008BI022806

PATIENT
  Sex: Female

DRUGS (1)
  1. AVONEX [Suspect]
     Indication: MULTIPLE SCLEROSIS
     Dosage: 30 UG;QW;IM
     Route: 030
     Dates: start: 19980119, end: 20080720

REACTIONS (5)
  - CONDITION AGGRAVATED [None]
  - CYST [None]
  - MALIGNANT MELANOMA [None]
  - MULTIPLE SCLEROSIS [None]
  - NEOPLASM MALIGNANT [None]
